FAERS Safety Report 9042112 (Version 1)
Quarter: 2013Q1

REPORT INFORMATION
  Report Type: Spontaneous
  Country: US (occurrence: US)
  Receive Date: 20130129
  Receipt Date: 20130129
  Transmission Date: 20140127
  Serious: No
  Sender: FDA-Public Use
  Company Number: US-B.I. PHARMACEUTICALS,INC./RIDGEFIELD-2013-BI-02305BP

PATIENT
  Sex: Male

DRUGS (9)
  1. SPIRIVA [Suspect]
     Indication: EMPHYSEMA
     Dosage: 18 MCG
     Route: 055
     Dates: start: 201208
  2. OXYCONTIN [Concomitant]
     Indication: ARTHRALGIA
     Dosage: 240 MG
     Route: 048
  3. VALIUM [Concomitant]
     Indication: ANXIETY
     Route: 048
  4. SOMA [Concomitant]
     Route: 048
  5. SYNTHROID [Concomitant]
     Indication: HYPOTHYROIDISM
     Route: 048
  6. EPIPEN [Concomitant]
     Indication: ANAPHYLACTIC REACTION
     Route: 030
  7. ALBUTEROL [Concomitant]
     Route: 055
  8. ROXICODONE [Concomitant]
     Dosage: 180 MG
     Route: 048
  9. FLONASE [Concomitant]
     Route: 045

REACTIONS (6)
  - Diarrhoea [Recovered/Resolved]
  - Vomiting [Recovered/Resolved]
  - Chills [Recovered/Resolved]
  - Hyperhidrosis [Recovered/Resolved]
  - Pyrexia [Recovered/Resolved]
  - Dyspnoea [Recovered/Resolved]
